FAERS Safety Report 15683154 (Version 1)
Quarter: 2018Q4

REPORT INFORMATION
  Report Type: Spontaneous
  Country: US (occurrence: US)
  Receive Date: 20181204
  Receipt Date: 20181204
  Transmission Date: 20190205
  Serious: Yes (Other)
  Sender: FDA-Public Use
  Company Number: US-AMGEN-USASP2018169468

PATIENT
  Age: 55 Year
  Sex: Male

DRUGS (11)
  1. ROMIPLOSTIM [Suspect]
     Active Substance: ROMIPLOSTIM
     Indication: DISSEMINATED INTRAVASCULAR COAGULATION
     Dosage: UNK
     Route: 065
  2. ENOXAPARIN [Concomitant]
     Active Substance: ENOXAPARIN
     Indication: RECTAL HAEMORRHAGE
     Dosage: 60 MG, BID
  3. AMINOCAPROIC ACID. [Concomitant]
     Active Substance: AMINOCAPROIC ACID
     Indication: RECTAL HAEMORRHAGE
     Dosage: UNK
     Route: 048
  4. HEPARIN [Concomitant]
     Active Substance: HEPARIN SODIUM
     Indication: RECTAL HAEMORRHAGE
     Route: 041
  5. CRYOPRECIPITATE [Concomitant]
     Active Substance: CRYOPRECIPITATED ANTIHEMOPHILIC FACTOR (HUMAN)
     Indication: RECTAL HAEMORRHAGE
     Dosage: UNK
  6. PACLITAXEL. [Concomitant]
     Active Substance: PACLITAXEL
     Indication: HEPATIC ANGIOSARCOMA
     Dosage: UNK
  7. DOXORUBICIN [Concomitant]
     Active Substance: DOXORUBICIN
     Indication: HEPATIC ANGIOSARCOMA
     Dosage: UNK
  8. TRANEXAMIC ACID. [Concomitant]
     Active Substance: TRANEXAMIC ACID
     Indication: RECTAL HAEMORRHAGE
     Dosage: UNK
  9. GEMCITABINE [Concomitant]
     Active Substance: GEMCITABINE\GEMCITABINE HYDROCHLORIDE
     Indication: HEPATIC ANGIOSARCOMA
     Dosage: UNK
  10. RED BLOOD CELLS [Concomitant]
     Active Substance: HUMAN RED BLOOD CELL
     Indication: RECTAL HAEMORRHAGE
     Dosage: UNK
  11. DOCETAXEL. [Concomitant]
     Active Substance: DOCETAXEL
     Indication: HEPATIC ANGIOSARCOMA
     Dosage: UNK

REACTIONS (2)
  - Angiosarcoma metastatic [Not Recovered/Not Resolved]
  - Off label use [Unknown]
